FAERS Safety Report 9693462 (Version 3)
Quarter: 2013Q4

REPORT INFORMATION
  Report Type: Spontaneous
  Country: RU (occurrence: RU)
  Receive Date: 20131118
  Receipt Date: 20131213
  Transmission Date: 20140711
  Serious: Yes (Other)
  Sender: FDA-Public Use
  Company Number: RU-PFIZER INC-2013324331

PATIENT
  Age: 51 Year
  Sex: Female
  Weight: 90 kg

DRUGS (2)
  1. ZYVOX [Suspect]
     Indication: PROPHYLAXIS
     Dosage: 600 MG, 2X/DAY, EVERY 12 HOURS
     Route: 048
     Dates: start: 20131106, end: 20131126
  2. GINSENG [Concomitant]
     Dosage: 1 DF, 1X/DAY IN THE MORNING
     Dates: start: 201310

REACTIONS (9)
  - Suspected counterfeit product [Recovered/Resolved]
  - Loss of consciousness [Recovered/Resolved]
  - Syncope [Recovered/Resolved]
  - Dizziness [Recovered/Resolved]
  - Vision blurred [Recovered/Resolved]
  - Body temperature increased [Recovered/Resolved]
  - Nausea [Recovered/Resolved]
  - Vomiting [Recovered/Resolved]
  - Diarrhoea [Recovered/Resolved]
